FAERS Safety Report 7386150-9 (Version None)
Quarter: 2011Q1

REPORT INFORMATION
  Report Type: 
  Country: None (occurrence: None)
  Receive Date: 20110329
  Receipt Date: 20110329
  Transmission Date: 20110831
  Serious: Yes (Life-Threatening, Hospitalization, Other)
  Sender: FDA-Public Use
  Company Number: None

PATIENT
  Age: 43 Year
  Sex: Male
  Weight: 56.8 kg

DRUGS (2)
  1. ZITHROMAX [Suspect]
     Indication: BRONCHITIS
     Dosage: 500MG DAY 1, 250MG DAYS 2,3,4 ORAL
     Route: 048
     Dates: start: 20110307, end: 20110311
  2. ZITHROMAX [Suspect]
     Indication: SINUSITIS
     Dosage: 500MG DAY 1, 250MG DAYS 2,3,4 ORAL
     Route: 048
     Dates: start: 20110307, end: 20110311

REACTIONS (8)
  - COGNITIVE DISORDER [None]
  - FATIGUE [None]
  - DISTURBANCE IN ATTENTION [None]
  - HALLUCINATION [None]
  - PETIT MAL EPILEPSY [None]
  - PALPITATIONS [None]
  - DECREASED INTEREST [None]
  - ANXIETY [None]
